FAERS Safety Report 14033461 (Version 1)
Quarter: 2017Q4

REPORT INFORMATION
  Report Type: Spontaneous
  Country: BG (occurrence: BG)
  Receive Date: 20171003
  Receipt Date: 20171003
  Transmission Date: 20180321
  Serious: Yes (Other)
  Sender: FDA-Public Use
  Company Number: BG-ASTRAZENECA-2017SE96605

PATIENT
  Sex: Male

DRUGS (2)
  1. AMARYL [Concomitant]
     Active Substance: GLIMEPIRIDE
     Indication: TYPE 2 DIABETES MELLITUS
  2. XIGDUO XR [Suspect]
     Active Substance: DAPAGLIFLOZIN PROPANEDIOL\METFORMIN HYDROCHLORIDE
     Dosage: 5 MG/850 MG TWICE DAILY
     Route: 048

REACTIONS (1)
  - Diabetic ketoacidosis [Recovered/Resolved]
